FAERS Safety Report 23237509 (Version 1)
Quarter: 2023Q4

REPORT INFORMATION
  Report Type: Spontaneous
  Country: US (occurrence: US)
  Receive Date: 20231128
  Receipt Date: 20231128
  Transmission Date: 20240109
  Serious: Yes (Other)
  Sender: FDA-Public Use
  Company Number: US-Stemline Therapeutics, Inc.-2023ST004489

PATIENT
  Age: 62 Year
  Sex: Female

DRUGS (1)
  1. ORSERDU [Suspect]
     Active Substance: ELACESTRANT
     Indication: Product used for unknown indication
     Dosage: 345 MG, ONCE A DAY
     Route: 048
     Dates: start: 20230701

REACTIONS (6)
  - Haemoglobin decreased [Unknown]
  - Product dose omission issue [Unknown]
  - Hypophagia [Recovered/Resolved]
  - Pleural effusion [Recovering/Resolving]
  - Nausea [Unknown]
  - Fatigue [Recovered/Resolved]
